FAERS Safety Report 13398397 (Version 1)
Quarter: 2017Q2

REPORT INFORMATION
  Report Type: Spontaneous
  Country: US (occurrence: US)
  Receive Date: 20170403
  Receipt Date: 20170403
  Transmission Date: 20170830
  Serious: Yes (Death)
  Sender: FDA-Public Use
  Company Number: US-CELGENEUS-USA-20170310608

PATIENT
  Age: 60 Year
  Sex: Female
  Weight: 69.9 kg

DRUGS (6)
  1. VINCRISTINE [Suspect]
     Active Substance: VINCRISTINE
     Indication: T-CELL LYMPHOMA
     Route: 065
     Dates: start: 20170313, end: 20170318
  2. REVLIMID [Suspect]
     Active Substance: LENALIDOMIDE
     Indication: T-CELL LYMPHOMA
     Dosage: 10 MILLIGRAM
     Route: 048
     Dates: start: 20170221, end: 20170303
  3. CYCLOPHOSPHAMIDE. [Suspect]
     Active Substance: CYCLOPHOSPHAMIDE
     Indication: T-CELL LYMPHOMA
     Route: 065
     Dates: start: 20170313, end: 20170318
  4. PREDNISONE. [Suspect]
     Active Substance: PREDNISONE
     Indication: T-CELL LYMPHOMA
     Route: 065
     Dates: start: 20170313, end: 20170318
  5. DOXORUBICIN [Suspect]
     Active Substance: DOXORUBICIN
     Indication: T-CELL LYMPHOMA
     Route: 065
     Dates: start: 20170313, end: 20170318
  6. ETOPOSIDE. [Suspect]
     Active Substance: ETOPOSIDE
     Indication: T-CELL LYMPHOMA
     Route: 065
     Dates: start: 20170313, end: 20170318

REACTIONS (1)
  - Infection in an immunocompromised host [Fatal]

NARRATIVE: CASE EVENT DATE: 20170328
